FAERS Safety Report 24831975 (Version 2)
Quarter: 2025Q1

REPORT INFORMATION
  Report Type: Spontaneous
  Country: US (occurrence: US)
  Receive Date: 20250110
  Receipt Date: 20250212
  Transmission Date: 20250409
  Serious: No
  Sender: PFIZER
  Company Number: US-PFIZER INC-PV202500003157

PATIENT
  Age: 15 Year
  Sex: Male
  Weight: 47.5 kg

DRUGS (1)
  1. GENOTROPIN [Suspect]
     Active Substance: SOMATROPIN
     Indication: Short stature
     Dosage: 1.2 MG, DAILY, 7 DAYS/WEEK

REACTIONS (1)
  - Glycosylated haemoglobin increased [Unknown]
